FAERS Safety Report 8938008 (Version 2)
Quarter: 2012Q4

REPORT INFORMATION
  Report Type: Report from Study
  Country: PL (occurrence: PL)
  Receive Date: 20121130
  Receipt Date: 20121214
  Transmission Date: 20130627
  Serious: Yes (Hospitalization)
  Sender: FDA-Public Use
  Company Number: PL-009507513-1211POL011823

PATIENT
  Age: 66 Year
  Sex: Male
  Weight: 103.7 kg

DRUGS (8)
  1. SITAGLIPTIN PHOSPHATE [Suspect]
     Indication: TYPE 2 DIABETES MELLITUS
     Dosage: 100 mg, qam
     Route: 048
     Dates: start: 20101006
  2. BISOCARD [Concomitant]
     Indication: HYPERTENSION
     Dosage: daily dose 5 mg
     Dates: start: 2008
  3. BISOCARD [Concomitant]
     Indication: CARDIAC FAILURE CONGESTIVE
  4. POLOCARD [Concomitant]
     Indication: PROPHYLAXIS
     Dosage: daily dose 75mg
     Dates: start: 2008
  5. VIVACE [Concomitant]
     Indication: HYPERTENSION
     Dosage: daily dose 10mg
     Dates: start: 2008
  6. METFORMIN [Concomitant]
     Indication: DIABETES MELLITUS
     Dosage: daily dose 2550 mg
     Dates: start: 2008
  7. DIAPREL MR [Concomitant]
     Indication: DIABETES MELLITUS
     Dosage: daily dose 90 mg
     Dates: start: 2008
  8. ATORIS [Concomitant]
     Indication: HYPERCHOLESTEROLAEMIA
     Dosage: daily dose 20 mg
     Dates: start: 2008

REACTIONS (1)
  - Lung neoplasm malignant [Recovering/Resolving]
